FAERS Safety Report 4845393-6 (Version None)
Quarter: 2005Q4

REPORT INFORMATION
  Report Type: 
  Country: None (occurrence: None)
  Receive Date: 20051129
  Receipt Date: 20051114
  Transmission Date: 20060501
  Serious: No
  Sender: FDA-Public Use
  Company Number: 2005-134863-NL

PATIENT
  Age: 19 Year
  Sex: Female

DRUGS (3)
  1. VECURONIUM BROMIDE [Suspect]
     Indication: HYPOTONIA
     Dosage: 6 MG, ONCE; INTRAVENOUS (NOS)
     Route: 042
  2. FENTANYL [Suspect]
     Indication: INDUCTION OF ANAESTHESIA
     Dosage: INTRAVENOUS (NOS)
     Route: 042
  3. PROPOFOL [Suspect]
     Indication: INDUCTION OF ANAESTHESIA
     Dosage: 100 MG ONCE; INTRAVENOUS (NOS)
     Route: 042

REACTIONS (3)
  - BRONCHIAL OBSTRUCTION [None]
  - BRONCHOSTENOSIS [None]
  - HYPOVENTILATION [None]
